FAERS Safety Report 23292568 (Version 3)
Quarter: 2024Q1

REPORT INFORMATION
  Report Type: Report from Study
  Country: US (occurrence: US)
  Receive Date: 20231213
  Receipt Date: 20240208
  Transmission Date: 20240410
  Serious: Yes (Hospitalization, Other)
  Sender: FDA-Public Use
  Company Number: US-PFIZER INC-PV202300198382

PATIENT
  Age: 56 Year
  Sex: Female

DRUGS (4)
  1. MEKTOVI [Suspect]
     Active Substance: BINIMETINIB
     Indication: Malignant melanoma
     Dosage: 45 MG, 2X/DAY
     Route: 048
     Dates: start: 20231110, end: 20231202
  2. MEKTOVI [Suspect]
     Active Substance: BINIMETINIB
     Dosage: 15 MG, 2X/DAY
     Route: 048
     Dates: start: 20231110
  3. BRAFTOVI [Suspect]
     Active Substance: ENCORAFENIB
     Indication: Malignant melanoma
     Dosage: 450 MG, 1X/DAY
     Route: 048
     Dates: start: 20231110, end: 20231201
  4. BRAFTOVI [Suspect]
     Active Substance: ENCORAFENIB
     Dosage: 225 MG, 1X/DAY
     Route: 048
     Dates: start: 20231110

REACTIONS (11)
  - Dizziness [Unknown]
  - Loss of consciousness [Unknown]
  - Haematochezia [Unknown]
  - Upper gastrointestinal haemorrhage [Unknown]
  - Fatigue [Unknown]
  - Rash [Recovering/Resolving]
  - Decreased appetite [Unknown]
  - Nausea [Recovering/Resolving]
  - Diarrhoea [Unknown]
  - Alopecia [Unknown]
  - Product dose omission issue [Unknown]
